FAERS Safety Report 5874375-0 (Version None)
Quarter: 2008Q3

REPORT INFORMATION
  Report Type: 
  Country: None (occurrence: None)
  Receive Date: 20080908
  Receipt Date: 20050926
  Transmission Date: 20090109
  Serious: Yes (Life-Threatening)
  Sender: FDA-Public Use
  Company Number: DE-VALEANT-2008VX001560

PATIENT
  Age: 41 Year
  Sex: Female

DRUGS (4)
  1. DALMADORM ^ICN^ [Suspect]
     Route: 065
  2. ALCOHOL [Suspect]
     Route: 065
  3. DOLOMO [Suspect]
     Route: 065
  4. KATADOLON [Suspect]
     Route: 065

REACTIONS (4)
  - ALCOHOL USE [None]
  - MULTIPLE DRUG OVERDOSE INTENTIONAL [None]
  - SOMNOLENCE [None]
  - SUICIDE ATTEMPT [None]
